FAERS Safety Report 12099099 (Version 1)
Quarter: 2016Q1

REPORT INFORMATION
  Report Type: Spontaneous
  Country: US (occurrence: US)
  Receive Date: 20160222
  Receipt Date: 20160222
  Transmission Date: 20160526
  Serious: No
  Sender: FDA-Public Use
  Company Number: US-TEVA-558317USA

PATIENT
  Age: 18 Year
  Sex: Male
  Weight: 74.83 kg

DRUGS (1)
  1. CETIRIZINE W/PSEUDOEPHEDRINE ER [Suspect]
     Active Substance: CETIRIZINE HYDROCHLORIDE\PSEUDOEPHEDRINE HYDROCHLORIDE
     Indication: HYPERSENSITIVITY
     Route: 048
     Dates: start: 201411, end: 201411

REACTIONS (2)
  - Educational problem [Unknown]
  - Feeling abnormal [Not Recovered/Not Resolved]

NARRATIVE: CASE EVENT DATE: 201411
